FAERS Safety Report 6015472-9 (Version None)
Quarter: 2008Q4

REPORT INFORMATION
  Report Type: 
  Country: None (occurrence: None)
  Receive Date: 20081222
  Receipt Date: 20081215
  Transmission Date: 20090506
  Serious: Yes (Hospitalization, Other)
  Sender: FDA-Public Use
  Company Number: GB-ELI_LILLY_AND_COMPANY-GB200811005303

PATIENT
  Sex: Female
  Weight: 83.6 kg

DRUGS (7)
  1. BYETTA [Suspect]
     Indication: BLOOD GLUCOSE INCREASED
     Dosage: 10 UG, UNKNOWN
     Route: 065
     Dates: start: 20080901, end: 20081101
  2. BETAHISTINE [Concomitant]
     Indication: VERTIGO
     Dosage: 8 MG, 3/D
     Route: 048
     Dates: start: 19980101
  3. METFORMIN HCL [Concomitant]
     Dosage: 500 MG, 4/D
     Route: 048
     Dates: start: 19950101
  4. CHLORDIAZEPOXIDE [Concomitant]
     Indication: ANXIETY
     Dosage: 5 MG, 2/D
     Route: 048
     Dates: start: 19790101
  5. PROPRANOLOL [Concomitant]
     Indication: ANXIETY
     Dosage: 40 MG, 3/D
     Route: 048
     Dates: start: 19790101
  6. ATORVASTATIN CALCIUM [Concomitant]
     Dosage: 10 MG, UNKNOWN
     Route: 048
     Dates: start: 20050101
  7. LISINOPRIL [Concomitant]
     Indication: HYPERTENSION
     Dosage: 20 MG, UNKNOWN
     Route: 048
     Dates: start: 20080101

REACTIONS (2)
  - CEREBRAL INFARCTION [None]
  - MIGRAINE [None]
